FAERS Safety Report 10207002 (Version 1)
Quarter: 2014Q2

REPORT INFORMATION
  Report Type: Spontaneous
  Country: US (occurrence: None)
  Receive Date: 20140527
  Receipt Date: 20140527
  Transmission Date: 20141212
  Serious: Yes (Hospitalization)
  Sender: FDA-Public Use
  Company Number: None

PATIENT
  Age: 56 Year
  Sex: Male

DRUGS (14)
  1. LEUPROLIDE [Suspect]
     Indication: NEOPLASM MALIGNANT
     Route: 030
     Dates: start: 20090729, end: 20120614
  2. ACETAMINOPHEN [Concomitant]
  3. ASPIRIN [Concomitant]
  4. ATORVASTATIN [Concomitant]
  5. CLOPIDOGREL [Concomitant]
  6. DALTEPARIN [Concomitant]
  7. INSULIN ASPART [Concomitant]
  8. INSULIN GLARGINE [Concomitant]
  9. LABETALOL [Concomitant]
  10. LOSARTAN [Concomitant]
  11. METOCLOPRAMIDE [Concomitant]
  12. ONDANSETRON [Concomitant]
  13. OXYCODONE [Concomitant]
  14. ABIRATERONE [Concomitant]

REACTIONS (2)
  - Hypertensive emergency [None]
  - Acute myocardial infarction [None]
